FAERS Safety Report 7780189-7 (Version None)
Quarter: 2011Q3

REPORT INFORMATION
  Report Type: 
  Country: None (occurrence: None)
  Receive Date: 20110927
  Receipt Date: 20110927
  Transmission Date: 20111222
  Serious: Yes (Disabling, Other)
  Sender: FDA-Public Use
  Company Number: None

PATIENT
  Age: 68 Year
  Sex: Female
  Weight: 70.306 kg

DRUGS (1)
  1. XARELTO [Suspect]
     Indication: KNEE ARTHROPLASTY
     Dosage: 10MG
     Route: 048
     Dates: start: 20110922, end: 20110924

REACTIONS (5)
  - KNEE ARTHROPLASTY [None]
  - HAEMORRHAGE [None]
  - HAEMATOCRIT DECREASED [None]
  - CONTUSION [None]
  - HAEMOGLOBIN DECREASED [None]
